FAERS Safety Report 4437616-2 (Version None)
Quarter: 2004Q3

REPORT INFORMATION
  Report Type: 
  Country: None (occurrence: None)
  Receive Date: 20040827
  Receipt Date: 20040824
  Transmission Date: 20050211
  Serious: Yes (Life-Threatening, Hospitalization)
  Sender: FDA-Public Use
  Company Number: 200410834BVD

PATIENT
  Sex: Male
  Weight: 71 kg

DRUGS (1)
  1. AVELOX [Suspect]
     Indication: INFECTION
     Dosage: 400 MG, OTTAL DAILY, ORAL
     Route: 048
     Dates: start: 20040621, end: 20040624

REACTIONS (5)
  - EPISTAXIS [None]
  - GASTROINTESTINAL HAEMORRHAGE [None]
  - HAEMATURIA [None]
  - PETECHIAE [None]
  - THROMBOCYTOPENIA [None]
